FAERS Safety Report 4450422-8 (Version None)
Quarter: 2004Q3

REPORT INFORMATION
  Report Type: 
  Country: None (occurrence: None)
  Receive Date: 20040914
  Receipt Date: 20040830
  Transmission Date: 20050211
  Serious: No
  Sender: FDA-Public Use
  Company Number: A01200404155

PATIENT
  Age: 40 Year
  Sex: Male

DRUGS (3)
  1. ZOLPIDEM TARTRATE [Suspect]
     Indication: INSOMNIA
     Dosage: 5 MG BID
     Route: 048
     Dates: start: 20040701
  2. MOVINA (HYPERICUM PERFORATUM) [Suspect]
     Route: 048
     Dates: start: 20040814, end: 20040822
  3. MULTI-VITAMINS [Concomitant]

REACTIONS (3)
  - BLISTER [None]
  - DRUG INTERACTION [None]
  - PRURITUS GENERALISED [None]
